FAERS Safety Report 17107887 (Version 1)
Quarter: 2019Q4

REPORT INFORMATION
  Report Type: Spontaneous
  Country: US (occurrence: US)
  Receive Date: 20191204
  Receipt Date: 20191204
  Transmission Date: 20200122
  Serious: No
  Sender: FDA-Public Use
  Company Number: US-UCBSA-2017043713

PATIENT
  Sex: Male

DRUGS (2)
  1. VIMPAT [Suspect]
     Active Substance: LACOSAMIDE
     Indication: PRODUCT USED FOR UNKNOWN INDICATION
     Dosage: 100MG TABLET
  2. VIMPAT [Suspect]
     Active Substance: LACOSAMIDE
     Dosage: ONE HALF (50MG) TABLET
     Dates: start: 20171023

REACTIONS (4)
  - Balance disorder [Unknown]
  - Intentional product misuse [Unknown]
  - Vision blurred [Unknown]
  - Fatigue [Unknown]

NARRATIVE: CASE EVENT DATE: 20171023
